FAERS Safety Report 25571711 (Version 1)
Quarter: 2025Q3

REPORT INFORMATION
  Report Type: Spontaneous
  Country: US (occurrence: US)
  Receive Date: 20250717
  Receipt Date: 20250717
  Transmission Date: 20251021
  Serious: No
  Sender: STRIDES
  Company Number: US-STRIDES ARCOLAB LIMITED-2025SP000343

PATIENT
  Age: 65 Year
  Sex: Female

DRUGS (4)
  1. OMEPRAZOLE [Suspect]
     Active Substance: OMEPRAZOLE
     Indication: Lymphocytic oesophagitis
     Route: 065
  2. OMEPRAZOLE [Suspect]
     Active Substance: OMEPRAZOLE
     Indication: Lichenoid keratosis
  3. FLUTICASONE [Concomitant]
     Active Substance: FLUTICASONE
     Indication: Lymphocytic oesophagitis
     Route: 048
  4. FLUTICASONE [Concomitant]
     Active Substance: FLUTICASONE
     Indication: Lichenoid keratosis

REACTIONS (1)
  - Off label use [Unknown]
